FAERS Safety Report 9861622 (Version 2)
Quarter: 2014Q1

REPORT INFORMATION
  Report Type: Spontaneous
  Country: US (occurrence: US)
  Receive Date: 20140203
  Receipt Date: 20140311
  Transmission Date: 20141002
  Serious: Yes (Hospitalization)
  Sender: FDA-Public Use
  Company Number: US-BIOGENIDEC-2014BI009359

PATIENT
  Sex: Female

DRUGS (12)
  1. AVONEX [Suspect]
     Indication: MULTIPLE SCLEROSIS
     Route: 030
     Dates: start: 20080916
  2. AVONEX [Suspect]
     Indication: MULTIPLE SCLEROSIS
     Route: 030
     Dates: start: 20110420
  3. CALCIUM +D [Concomitant]
  4. CIPRO [Concomitant]
  5. EVISTA [Concomitant]
  6. FEMHRT LOW DOSE [Concomitant]
  7. JINTELI [Concomitant]
  8. LEXAPRO [Concomitant]
  9. LORTAB [Concomitant]
  10. OXYCODONE HCI [Concomitant]
  11. PRO-BIOTIC BLEND [Concomitant]
  12. XANAX [Concomitant]

REACTIONS (2)
  - Head injury [Unknown]
  - Fall [Recovered/Resolved]
